FAERS Safety Report 7069818-3 (Version None)
Quarter: 2010Q4

REPORT INFORMATION
  Report Type: 
  Country: None (occurrence: None)
  Receive Date: 20101028
  Receipt Date: 20100607
  Transmission Date: 20110411
  Serious: No
  Sender: FDA-Public Use
  Company Number: US-WYE-H15689110

PATIENT
  Sex: Female
  Weight: 54.93 kg

DRUGS (3)
  1. PROTONIX [Suspect]
     Indication: GASTROOESOPHAGEAL REFLUX DISEASE
     Route: 048
  2. CALCIUM [Concomitant]
  3. VITAMINS [Concomitant]

REACTIONS (4)
  - CONDITION AGGRAVATED [None]
  - OROPHARYNGEAL PAIN [None]
  - RHINITIS SEASONAL [None]
  - UPPER-AIRWAY COUGH SYNDROME [None]
